FAERS Safety Report 18683082 (Version 1)
Quarter: 2020Q4

REPORT INFORMATION
  Report Type: Spontaneous
  Country: ES (occurrence: ES)
  Receive Date: 20201230
  Receipt Date: 20201230
  Transmission Date: 20210114
  Serious: Yes (Hospitalization)
  Sender: FDA-Public Use
  Company Number: ES-TEVA-2020-ES-1862765

PATIENT
  Age: 85 Year
  Sex: Male

DRUGS (5)
  1. ACETILSALICILICO ACIDO (176A) [Interacting]
     Active Substance: ASPIRIN
     Dosage: 300MG
     Route: 048
     Dates: start: 20201119, end: 20201119
  2. ENOXAPARINA SODICA (2482SO) [Interacting]
     Active Substance: ENOXAPARIN SODIUM
     Indication: PULMONARY ARTERY THROMBOSIS
     Dosage: 60MG
     Route: 058
     Dates: start: 20201119, end: 20201124
  3. ACETILSALICILICO ACIDO (176A) [Interacting]
     Active Substance: ASPIRIN
     Indication: DRUG DELIVERY DEVICE PLACEMENT
     Dosage: 100MG
     Route: 048
     Dates: start: 20201119
  4. CLOPIDOGREL [Suspect]
     Active Substance: CLOPIDOGREL BISULFATE
     Indication: DRUG DELIVERY DEVICE PLACEMENT
     Dosage: 75MG
     Route: 048
     Dates: start: 20201120
  5. ATORVASTATINA (7400A) [Concomitant]
     Active Substance: ATORVASTATIN
     Indication: PROPHYLAXIS
     Dosage: 80MG
     Route: 048
     Dates: start: 20201120

REACTIONS (3)
  - Catheter site haematoma [Recovering/Resolving]
  - Paraesthesia [Recovered/Resolved]
  - Drug interaction [Unknown]

NARRATIVE: CASE EVENT DATE: 20201121
